FAERS Safety Report 21796006 (Version 2)
Quarter: 2023Q1

REPORT INFORMATION
  Report Type: Spontaneous
  Country: US (occurrence: US)
  Receive Date: 20221229
  Receipt Date: 20230130
  Transmission Date: 20230417
  Serious: Yes (Other)
  Sender: FDA-Public Use
  Company Number: US-PFIZER INC-202201396144

PATIENT
  Age: 73 Year
  Sex: Female

DRUGS (6)
  1. INLYTA [Suspect]
     Active Substance: AXITINIB
     Dosage: 1 DF, 2X/DAY (EVERY 12 HOURS)
     Dates: start: 20221207, end: 20230106
  2. INLYTA [Suspect]
     Active Substance: AXITINIB
     Dosage: 1 DF
     Dates: start: 20230116
  3. KEYTRUDA [Suspect]
     Active Substance: PEMBROLIZUMAB
     Dosage: UNK
  4. VITAMIN C [Concomitant]
     Active Substance: ASCORBIC ACID
     Dosage: UNK
  5. VITAMIN D3 [Concomitant]
     Active Substance: CHOLECALCIFEROL
     Dosage: UNK
  6. XANAX [Concomitant]
     Active Substance: ALPRAZOLAM
     Dosage: UNK

REACTIONS (13)
  - Second primary malignancy [Unknown]
  - Bone cancer [Unknown]
  - Hypertension [Recovered/Resolved]
  - Gait disturbance [Unknown]
  - Fatigue [Recovered/Resolved]
  - Pruritus [Recovering/Resolving]
  - Anxiety [Unknown]
  - Depression [Unknown]
  - Heart rate increased [Unknown]
  - Erythema [Unknown]
  - Feeling abnormal [Unknown]
  - Chest discomfort [Unknown]
  - Rash [Recovered/Resolved]

NARRATIVE: CASE EVENT DATE: 20221201
